FAERS Safety Report 10183366 (Version 3)
Quarter: 2014Q3

REPORT INFORMATION
  Report Type: Spontaneous
  Country: JP (occurrence: JP)
  Receive Date: 20140520
  Receipt Date: 20140715
  Transmission Date: 20150326
  Serious: Yes (Other)
  Sender: FDA-Public Use
  Company Number: JP-EISAI INC-E2090-03275-SPO-JP

PATIENT
  Age: 75 Year
  Sex: Female

DRUGS (6)
  1. DESYREL [Suspect]
     Active Substance: TRAZODONE HYDROCHLORIDE
     Indication: DEPRESSION
     Dosage: 25MG DAILY
     Route: 048
     Dates: start: 20140507, end: 20140515
  2. KEPPRA [Suspect]
     Active Substance: LEVETIRACETAM
     Indication: EPILEPSY
     Dosage: 1500MG DAILY
     Route: 048
     Dates: start: 20140401, end: 20140515
  3. ALEVIATIN [Suspect]
     Active Substance: PHENYTOIN SODIUM
     Indication: EPILEPSY
     Dosage: 140MG DAILY
     Route: 048
     Dates: start: 20140401, end: 20140515
  4. MYSLEE [Concomitant]
     Active Substance: ZOLPIDEM TARTRATE
     Indication: INSOMNIA
     Dosage: 5MG/DAY
     Route: 048
     Dates: start: 20140401
  5. LAXOBERON [Concomitant]
     Active Substance: SODIUM PICOSULFATE
     Indication: ABDOMINAL DISTENSION
     Dosage: 5MG/DAY
     Route: 048
     Dates: start: 20140424
  6. EXCEGRAN [Suspect]
     Active Substance: ZONISAMIDE
     Indication: EPILEPSY
     Route: 048
     Dates: start: 20140408

REACTIONS (4)
  - Blood potassium decreased [Not Recovered/Not Resolved]
  - Agranulocytosis [Recovering/Resolving]
  - Pneumonia [Recovered/Resolved]
  - Drug eruption [Recovered/Resolved]

NARRATIVE: CASE EVENT DATE: 20140515
